FAERS Safety Report 7528982-X (Version None)
Quarter: 2011Q2

REPORT INFORMATION
  Report Type: 
  Country: None (occurrence: None)
  Receive Date: 20110607
  Receipt Date: 20110530
  Transmission Date: 20111010
  Serious: Yes (Other)
  Sender: FDA-Public Use
  Company Number: JP-SANOFI-AVENTIS-2011SA004688

PATIENT
  Age: 79 Year
  Sex: Female
  Weight: 44.5 kg

DRUGS (9)
  1. BISOPROLOL FUMARATE [Concomitant]
     Indication: CARDIAC FAILURE
     Route: 048
     Dates: start: 20080229
  2. DIGOXIN [Concomitant]
     Indication: ATRIAL FIBRILLATION
     Route: 048
     Dates: start: 20040109
  3. FAMOTIDINE [Concomitant]
     Indication: GASTRIC MUCOSAL LESION
     Route: 048
     Dates: start: 20020215
  4. ROSUVASTATIN CALCIUM [Concomitant]
     Route: 048
     Dates: start: 20100430
  5. WARFARIN SODIUM [Concomitant]
     Indication: THROMBOSIS PROPHYLAXIS
     Route: 048
     Dates: start: 20050718, end: 20110114
  6. SENNOSIDE A [Concomitant]
     Dates: start: 20090410
  7. DRONEDARONE HCL [Suspect]
     Indication: ATRIAL FIBRILLATION
     Route: 048
     Dates: start: 20110120, end: 20110124
  8. WARFARIN SODIUM [Concomitant]
     Route: 048
     Dates: start: 20110115
  9. BASEN [Concomitant]
     Route: 048
     Dates: start: 20100430

REACTIONS (1)
  - CARDIAC FAILURE [None]
